FAERS Safety Report 7495413-8 (Version None)
Quarter: 2011Q2

REPORT INFORMATION
  Report Type: 
  Country: None (occurrence: None)
  Receive Date: 20110513
  Receipt Date: 20110427
  Transmission Date: 20111010
  Serious: Yes (Death)
  Sender: FDA-Public Use
  Company Number: TCI2011A02723

PATIENT
  Age: 70 Year
  Sex: Female

DRUGS (3)
  1. TSUMURA SHAKANZOUTOU (HERBAL EXTRAT NOS) [Concomitant]
  2. ANTIHYPERTENSIVE (ANTIHYPERTENSIVES) [Concomitant]
  3. ROZEREM [Suspect]
     Indication: INSOMNIA
     Dosage: 8 MG (8 MG, 1 IN 1 D) PER ORAL
     Route: 048
     Dates: start: 20110414

REACTIONS (2)
  - FALL [None]
  - DROWNING [None]
